FAERS Safety Report 5519722-4 (Version None)
Quarter: 2007Q4

REPORT INFORMATION
  Report Type: 
  Country: None (occurrence: None)
  Receive Date: 20071116
  Receipt Date: 20070723
  Transmission Date: 20080405
  Serious: No
  Sender: FDA-Public Use
  Company Number: A0665802A

PATIENT
  Age: 73 Year
  Sex: Female

DRUGS (3)
  1. COREG CR [Suspect]
     Indication: HYPERTENSION
     Dosage: 40MG PER DAY
     Route: 048
     Dates: start: 20070721
  2. QUINAPRIL HCL [Concomitant]
  3. MULTIPLE MEDICATIONS [Concomitant]

REACTIONS (3)
  - ASTHENIA [None]
  - DIZZINESS POSTURAL [None]
  - SOMNOLENCE [None]
